FAERS Safety Report 5921112-7 (Version None)
Quarter: 2008Q4

REPORT INFORMATION
  Report Type: 
  Country: None (occurrence: None)
  Receive Date: 20081016
  Receipt Date: 20081006
  Transmission Date: 20090506
  Serious: Yes (Hospitalization, Other)
  Sender: FDA-Public Use
  Company Number: NL-ELI_LILLY_AND_COMPANY-NL200810001832

PATIENT
  Sex: Female

DRUGS (6)
  1. ZYPREXA [Suspect]
     Indication: DEPRESSED MOOD
     Dosage: 2.5 MG, 3/D
     Route: 048
     Dates: start: 20080630
  2. ZYPREXA [Interacting]
     Dosage: UNK, UNK
  3. CITALOPRAM HYDROBROMIDE [Concomitant]
     Dosage: 10 MG, DAILY (1/D)
     Route: 048
     Dates: start: 20070521
  4. OXAZEPAM [Concomitant]
     Dosage: 10 MG, 3/D
     Route: 048
     Dates: start: 20070207
  5. TEMAZEPAM [Concomitant]
     Dosage: 10 MG, DAILY (1/D)
     Route: 048
     Dates: start: 19950717
  6. ETHYMAL [Concomitant]
     Dosage: 250 MG, 3/D
     Dates: start: 19950516

REACTIONS (2)
  - CONVULSION [None]
  - DRUG INTERACTION [None]
